FAERS Safety Report 13213696 (Version 1)
Quarter: 2017Q1

REPORT INFORMATION
  Report Type: Spontaneous
  Country: US (occurrence: US)
  Receive Date: 20170209
  Receipt Date: 20170209
  Transmission Date: 20170428
  Serious: No
  Sender: FDA-Public Use
  Company Number: US-ALLERGAN-1665479US

PATIENT
  Sex: Female
  Weight: 68.27 kg

DRUGS (2)
  1. BOTOX COSMETIC [Suspect]
     Active Substance: ONABOTULINUMTOXINA
     Indication: SKIN WRINKLING
     Dosage: 30 UNITS, SINGLE
     Route: 030
     Dates: start: 20160726, end: 20160726
  2. JUVEDERM [Concomitant]
     Active Substance: HYALURONIC ACID
     Indication: PRODUCT USED FOR UNKNOWN INDICATION
     Dosage: UNK
     Dates: start: 20160726, end: 20160726

REACTIONS (5)
  - Skin tightness [Recovered/Resolved]
  - Rash [Not Recovered/Not Resolved]
  - Injection site mass [Not Recovered/Not Resolved]
  - Headache [Recovered/Resolved]
  - Off label use [Unknown]
